FAERS Safety Report 13512108 (Version 1)
Quarter: 2017Q2

REPORT INFORMATION
  Report Type: Spontaneous
  Country: US (occurrence: US)
  Receive Date: 20170504
  Receipt Date: 20170504
  Transmission Date: 20170830
  Serious: No
  Sender: FDA-Public Use
  Company Number: US-TEVA-758924ACC

PATIENT
  Age: 76 Year
  Sex: Male

DRUGS (9)
  1. TAMSULOSIN [Concomitant]
     Active Substance: TAMSULOSIN
  2. MYRBETRIQ [Suspect]
     Active Substance: MIRABEGRON
  3. TROSPIUM [Concomitant]
     Active Substance: TROSPIUM
  4. CALCIUM [Concomitant]
     Active Substance: CALCIUM
  5. FOSAMAX [Concomitant]
     Active Substance: ALENDRONATE SODIUM
  6. ESCITALOPRAM [Concomitant]
     Active Substance: ESCITALOPRAM OXALATE
  7. NICOTINIC ACID [Suspect]
     Active Substance: NIACIN
     Route: 065
  8. DONEPEZIL. [Concomitant]
     Active Substance: DONEPEZIL
     Dates: start: 20170124
  9. MYRBETRIQ [Suspect]
     Active Substance: MIRABEGRON
     Dosage: 25 MILLIGRAM DAILY;
     Route: 065
     Dates: start: 20170124, end: 20170129

REACTIONS (6)
  - Feeling hot [Unknown]
  - Burning sensation [Unknown]
  - Palpitations [Unknown]
  - Erythema [Unknown]
  - Paraesthesia [Unknown]
  - Blood pressure increased [Unknown]

NARRATIVE: CASE EVENT DATE: 20170128
